FAERS Safety Report 24994244 (Version 1)
Quarter: 2025Q1

REPORT INFORMATION
  Report Type: Spontaneous
  Country: US (occurrence: US)
  Receive Date: 20250221
  Receipt Date: 20250221
  Transmission Date: 20250409
  Serious: Yes (Hospitalization, Other)
  Sender: CIPLA
  Company Number: US-MLMSERVICE-20250207-PI400051-00054-1

PATIENT

DRUGS (3)
  1. TESTOSTERONE [Suspect]
     Active Substance: TESTOSTERONE
     Indication: Hormone replacement therapy
     Route: 030
  2. ANASTROZOLE [Suspect]
     Active Substance: ANASTROZOLE
     Indication: Hormone replacement therapy
     Route: 048
  3. TAMOXIFEN [Suspect]
     Active Substance: TAMOXIFEN
     Indication: Hormone replacement therapy
     Route: 048

REACTIONS (6)
  - Acute myocardial infarction [Unknown]
  - Cardiac ventricular thrombosis [Unknown]
  - Hypercoagulation [Unknown]
  - Pericarditis [Unknown]
  - Overdose [Unknown]
  - Off label use [Unknown]
